FAERS Safety Report 5319951-9 (Version None)
Quarter: 2007Q2

REPORT INFORMATION
  Report Type: 
  Country: None (occurrence: None)
  Receive Date: 20070502
  Receipt Date: 20070416
  Transmission Date: 20071010
  Serious: Yes (Life-Threatening, Hospitalization)
  Sender: FDA-Public Use
  Company Number: DSA_29770_2007

PATIENT
  Sex: Female

DRUGS (2)
  1. ATIVAN [Suspect]
     Dosage: 10 MG 1 X ORAL
     Route: 048
     Dates: start: 20070414, end: 20070414
  2. ETHANOL [Suspect]
     Dosage: ORAL
     Route: 048
     Dates: start: 20070414, end: 20070414

REACTIONS (5)
  - CONFUSIONAL STATE [None]
  - MULTIPLE DRUG OVERDOSE INTENTIONAL [None]
  - PUPILS UNEQUAL [None]
  - SUICIDE ATTEMPT [None]
  - VICTIM OF CRIME [None]
